FAERS Safety Report 8526816 (Version 3)
Quarter: 2013Q4

REPORT INFORMATION
  Report Type: Spontaneous
  Country: PT (occurrence: PT)
  Receive Date: 20120423
  Receipt Date: 20131021
  Transmission Date: 20140711
  Serious: Yes (Hospitalization, Other)
  Sender: FDA-Public Use
  Company Number: PT-MERCK-1204USA02208

PATIENT
  Age: 37 Year
  Sex: Female
  Weight: 60 kg

DRUGS (5)
  1. ISENTRESS [Suspect]
     Indication: HIV INFECTION
     Dosage: 800 MG, QD
     Route: 048
     Dates: start: 20120222, end: 20120331
  2. PREZISTA [Suspect]
     Indication: HIV INFECTION
     Dosage: 1200 MG, QD
     Route: 048
     Dates: start: 20120222, end: 20120315
  3. TRUVADA [Concomitant]
     Indication: HIV INFECTION
     Dosage: 1 DF, QD
     Route: 048
     Dates: start: 20120321, end: 20120331
  4. NORVIR [Concomitant]
     Indication: HIV INFECTION
     Dosage: 200 MG, QD
     Route: 048
     Dates: start: 200707, end: 20120315
  5. VIREAD [Concomitant]
     Indication: HIV INFECTION
     Dosage: 245 MG, QD
     Route: 048
     Dates: start: 20120222, end: 20120321

REACTIONS (19)
  - Enanthema [Recovered/Resolved]
  - Rash [Recovered/Resolved]
  - Conjunctivitis [Recovered/Resolved]
  - Leukocytosis [Recovered/Resolved]
  - Liver function test abnormal [Recovered/Resolved]
  - Aspartate aminotransferase increased [Recovered/Resolved]
  - Alanine aminotransferase increased [Recovered/Resolved]
  - Blood lactate dehydrogenase increased [Recovered/Resolved]
  - Gamma-glutamyltransferase increased [Recovered/Resolved]
  - Prothrombin level [Recovered/Resolved]
  - Hepatitis toxic [Recovered/Resolved]
  - Pyrexia [Recovered/Resolved]
  - Eosinophilia [Recovered/Resolved]
  - Pruritus generalised [Recovered/Resolved]
  - Anaemia [Recovered/Resolved]
  - Renal impairment [Recovered/Resolved]
  - Blood creatinine increased [Recovered/Resolved]
  - Blood urea increased [Recovered/Resolved]
  - Drug reaction with eosinophilia and systemic symptoms [Recovered/Resolved]
